FAERS Safety Report 6233554-3 (Version None)
Quarter: 2009Q2

REPORT INFORMATION
  Report Type: 
  Country: None (occurrence: None)
  Receive Date: 20090615
  Receipt Date: 20090303
  Transmission Date: 20091009
  Serious: Yes (Hospitalization)
  Sender: FDA-Public Use
  Company Number: 2009US000309

PATIENT
  Age: 86 Year
  Sex: Male

DRUGS (8)
  1. VESICARE [Suspect]
     Indication: URINARY INCONTINENCE
     Dosage: 5 MG,  3XWEEKLY,
     Dates: start: 20081125, end: 20090201
  2. COUMADIN [Concomitant]
  3. TAMSULOSIN HCL [Concomitant]
  4. AVODART [Concomitant]
  5. PREVACID [Concomitant]
  6. SYNTHROID [Concomitant]
  7. AMIODARON (AMIODARONE HYDROCHLORIDE) [Concomitant]
  8. IRON [Concomitant]

REACTIONS (4)
  - ATRIAL FIBRILLATION [None]
  - CONSTIPATION [None]
  - DRY MOUTH [None]
  - QRS AXIS ABNORMAL [None]
